FAERS Safety Report 7346243-9 (Version None)
Quarter: 2011Q1

REPORT INFORMATION
  Report Type: 
  Country: None (occurrence: None)
  Receive Date: 20110311
  Receipt Date: 20110309
  Transmission Date: 20110831
  Serious: No
  Sender: FDA-Public Use
  Company Number: US-PFIZER INC-2011052537

PATIENT
  Sex: Female
  Weight: 68.027 kg

DRUGS (3)
  1. BYSTOLIC [Concomitant]
     Dosage: UNK
  2. NEXIUM [Concomitant]
     Indication: GASTRIC DISORDER
     Dosage: UNK
  3. RELPAX [Suspect]
     Indication: MIGRAINE
     Dosage: 20 MG, AS NEEDED
     Route: 048

REACTIONS (1)
  - INCOHERENT [None]
